FAERS Safety Report 10428923 (Version 2)
Quarter: 2014Q3

REPORT INFORMATION
  Report Type: Report from Study
  Country: MY (occurrence: MY)
  Receive Date: 20140904
  Receipt Date: 20140905
  Transmission Date: 20150326
  Serious: Yes (Life-Threatening, Other)
  Sender: FDA-Public Use
  Company Number: MY-009507513-1408MYS017300

PATIENT
  Age: 51 Year
  Sex: Male

DRUGS (5)
  1. CEFTRIAXONE SODIUM. [Concomitant]
     Active Substance: CEFTRIAXONE SODIUM
     Indication: PRURITUS
     Dosage: TOTAL DAILY DOSE: 1 TABLET,DAILY
     Route: 048
  2. CALAMINE LOTION [Concomitant]
     Active Substance: CALAMINE LOTION
     Indication: PRURITUS
     Dosage: STRENGTH: 1 APPLICATION, TOTAL DAILY DOSE: 1 APPLICATION
     Route: 061
     Dates: start: 20140818
  3. ACETAMINOPHEN. [Concomitant]
     Active Substance: ACETAMINOPHEN
     Indication: PYREXIA
     Dosage: UNK, PRN, TOTAL DAILY DOSE: 500 MG
     Route: 048
     Dates: start: 20140818
  4. BENADRYL [Concomitant]
     Active Substance: DIPHENHYDRAMINE HYDROCHLORIDE
     Indication: COUGH
     Dosage: 15 ML, TID
     Route: 048
  5. PEGINTERFERON ALFA-2B [Suspect]
     Active Substance: PEGINTERFERON ALFA-2B
     Indication: HEPATITIS C
     Dosage: 80 MICROGRAM PER KILOGRAM, QW, STRENGTH: 80 MICROGRAM
     Route: 058
     Dates: start: 20140811, end: 20140825

REACTIONS (1)
  - Depression [Recovering/Resolving]

NARRATIVE: CASE EVENT DATE: 20140819
